FAERS Safety Report 19810171 (Version 1)
Quarter: 2021Q3

REPORT INFORMATION
  Report Type: Other
  Country: US (occurrence: US)
  Receive Date: 20210909
  Receipt Date: 20210909
  Transmission Date: 20211014
  Serious: Yes (Other)
  Sender: FDA-Public Use
  Company Number: US-ROCHE-2904385

PATIENT
  Sex: Male
  Weight: 108.96 kg

DRUGS (6)
  1. RITUXAN [Suspect]
     Active Substance: RITUXIMAB
     Indication: NEPHROTIC SYNDROME
  2. CYTOXAN [Concomitant]
     Active Substance: CYCLOPHOSPHAMIDE
     Indication: NEPHROTIC SYNDROME
  3. LOSARTAN. [Concomitant]
     Active Substance: LOSARTAN
     Route: 048
  4. PROGRAF [Concomitant]
     Active Substance: TACROLIMUS
     Indication: FOCAL SEGMENTAL GLOMERULOSCLEROSIS
     Route: 048
  5. ACTHAR [Concomitant]
     Active Substance: CORTICOTROPIN
     Indication: FOCAL SEGMENTAL GLOMERULOSCLEROSIS
     Dosage: INJECTION IN THIGH
  6. RITUXAN [Suspect]
     Active Substance: RITUXIMAB
     Indication: FOCAL SEGMENTAL GLOMERULOSCLEROSIS
     Route: 041

REACTIONS (7)
  - Haemorrhage [Recovered/Resolved]
  - Loss of consciousness [Recovered/Resolved]
  - Bladder cancer [Recovered/Resolved]
  - Focal segmental glomerulosclerosis [Not Recovered/Not Resolved]
  - Off label use [Unknown]
  - Blood pressure decreased [Recovered/Resolved]
  - Feeling cold [Recovered/Resolved]

NARRATIVE: CASE EVENT DATE: 2020
